FAERS Safety Report 16976557 (Version 2)
Quarter: 2019Q4

REPORT INFORMATION
  Report Type: Spontaneous
  Country: JP (occurrence: JP)
  Receive Date: 20191030
  Receipt Date: 20191120
  Transmission Date: 20200122
  Serious: Yes (Other)
  Sender: FDA-Public Use
  Company Number: JP-JNJFOC-20191039859

PATIENT
  Age: 8 Decade
  Sex: Male

DRUGS (14)
  1. PRAMIEL                            /00041902/ [Concomitant]
  2. CELECOX [Concomitant]
     Active Substance: CELECOXIB
     Dates: start: 20170514
  3. RIVAROXABAN [Suspect]
     Active Substance: RIVAROXABAN
     Indication: DEEP VEIN THROMBOSIS
     Dosage: DAILY DOSE 2 DF
     Route: 048
     Dates: start: 20170424, end: 20170509
  4. BAYASPIRIN [Suspect]
     Active Substance: ASPIRIN
     Indication: CEREBRAL INFARCTION
  5. AMLODIPINE [Concomitant]
     Active Substance: AMLODIPINE BESYLATE
  6. BAYASPIRIN [Suspect]
     Active Substance: ASPIRIN
     Indication: DEEP VEIN THROMBOSIS
     Dosage: DAILY DOSE 1 DF
     Route: 048
     Dates: end: 20170415
  7. BAYASPIRIN [Suspect]
     Active Substance: ASPIRIN
     Indication: MYOCARDIAL INFARCTION
     Route: 048
     Dates: start: 20170424, end: 20170509
  8. CALONAL [Concomitant]
     Active Substance: ACETAMINOPHEN
     Dates: start: 20170514
  9. LORELCO [Concomitant]
     Active Substance: PROBUCOL
  10. ARTIST [Concomitant]
     Active Substance: CARVEDILOL
  11. DAIMEDIN                           /00274301/ [Concomitant]
  12. CALONAL [Concomitant]
     Active Substance: ACETAMINOPHEN
  13. TRAMCET [Concomitant]
     Active Substance: ACETAMINOPHEN\TRAMADOL
  14. FAMOTIDINE. [Concomitant]
     Active Substance: FAMOTIDINE

REACTIONS (4)
  - Labelled drug-drug interaction medication error [Unknown]
  - Contraindicated product administered [Unknown]
  - Gastrointestinal mucosal disorder [Recovered/Resolved]
  - Large intestinal haemorrhage [Recovered/Resolved]

NARRATIVE: CASE EVENT DATE: 20170424
